FAERS Safety Report 18257796 (Version 2)
Quarter: 2020Q4

REPORT INFORMATION
  Report Type: Spontaneous
  Country: GB (occurrence: GB)
  Receive Date: 20200911
  Receipt Date: 20201001
  Transmission Date: 20210113
  Serious: Yes (Other)
  Sender: FDA-Public Use
  Company Number: NVSC2020GB248956

PATIENT

DRUGS (1)
  1. SECUKINUMAB. [Suspect]
     Active Substance: SECUKINUMAB
     Indication: PSORIASIS
     Dosage: 150 MG (300 MG TOTAL) AT WEEKS 0, 1, 2, 3 AND 4, UNTIL THE LAST DOSE AT WEEK 48
     Route: 058

REACTIONS (1)
  - Colitis ulcerative [Unknown]
